FAERS Safety Report 14590739 (Version 1)
Quarter: 2018Q1

REPORT INFORMATION
  Report Type: Spontaneous
  Country: US (occurrence: US)
  Receive Date: 20180301
  Receipt Date: 20180301
  Transmission Date: 20180509
  Serious: Yes (Life-Threatening)
  Sender: FDA-Public Use
  Company Number: None

PATIENT
  Age: 61 Year
  Sex: Male
  Weight: 74.25 kg

DRUGS (1)
  1. RANITIDINE. [Suspect]
     Active Substance: RANITIDINE
     Indication: GASTROOESOPHAGEAL REFLUX DISEASE
     Route: 048
     Dates: start: 20180125, end: 20180215

REACTIONS (16)
  - Fatigue [None]
  - Gastrointestinal sounds abnormal [None]
  - Hypotension [None]
  - Diarrhoea [None]
  - Nausea [None]
  - Vomiting [None]
  - Abdominal pain upper [None]
  - Depression [None]
  - Agitation [None]
  - Hyperhidrosis [None]
  - Chromaturia [None]
  - Apparent death [None]
  - Headache [None]
  - Vision blurred [None]
  - Heart rate increased [None]
  - Cough [None]

NARRATIVE: CASE EVENT DATE: 20180215
